FAERS Safety Report 8912724 (Version 1)
Quarter: 2012Q4

REPORT INFORMATION
  Report Type: 
  Country: ES (occurrence: ES)
  Receive Date: 20121115
  Receipt Date: 20121115
  Transmission Date: 20130627
  Serious: Yes (Hospitalization, Other)
  Sender: FDA-Public Use
  Company Number: ES-UCBSA-070657

PATIENT
  Age: 70 Year
  Sex: Female

DRUGS (1)
  1. CIMZIA [Suspect]
     Indication: RHEUMATOID ARTHRITIS
     Route: 042
     Dates: start: 20120720, end: 20120802

REACTIONS (4)
  - Pneumonia legionella [Recovered/Resolved]
  - Atrial fibrillation [Unknown]
  - Deep vein thrombosis [Unknown]
  - Device related infection [Unknown]
